FAERS Safety Report 9685679 (Version 2)
Quarter: 2013Q4

REPORT INFORMATION
  Report Type: Spontaneous
  Country: US (occurrence: US)
  Receive Date: 20131113
  Receipt Date: 20131219
  Transmission Date: 20140711
  Serious: No
  Sender: FDA-Public Use
  Company Number: US-PFIZER INC-2013320901

PATIENT
  Age: 38 Year
  Sex: Female
  Weight: 72.56 kg

DRUGS (2)
  1. ADVIL CONGESTION RELIEF [Suspect]
     Indication: NASOPHARYNGITIS
     Dosage: UNK, TWO TIMES A DAY
     Dates: start: 20131106, end: 201311
  2. VITAMIN C [Concomitant]
     Dosage: UNK

REACTIONS (1)
  - Drug ineffective [Unknown]
